FAERS Safety Report 4335579-1 (Version None)
Quarter: 2004Q2

REPORT INFORMATION
  Report Type: 
  Country: None (occurrence: None)
  Receive Date: 20040406
  Receipt Date: 20040325
  Transmission Date: 20050107
  Serious: Yes (Hospitalization)
  Sender: FDA-Public Use
  Company Number: S04-USA-01563-01

PATIENT
  Age: 15 Year
  Sex: Female

DRUGS (2)
  1. CELEXA [Suspect]
     Indication: ANXIETY
     Dosage: 10 MG ONCE PO
     Route: 048
     Dates: start: 20040201, end: 20040201
  2. CELEXA [Suspect]
     Indication: ANXIETY
     Dosage: 20 MG QD PO
     Route: 048
     Dates: start: 20040201, end: 20040201

REACTIONS (6)
  - ABDOMINAL PAIN UPPER [None]
  - DYSKINESIA [None]
  - EMOTIONAL DISORDER [None]
  - MUSCLE SPASMS [None]
  - RETCHING [None]
  - VOMITING [None]
